FAERS Safety Report 12082616 (Version 1)
Quarter: 2016Q1

REPORT INFORMATION
  Report Type: Spontaneous
  Country: US (occurrence: None)
  Receive Date: 20160212
  Receipt Date: 20160212
  Transmission Date: 20160526
  Serious: No
  Sender: FDA-Public Use
  Company Number: None

PATIENT
  Age: 58 Year
  Sex: Female
  Weight: 43.09 kg

DRUGS (4)
  1. CALCIUM [Concomitant]
     Active Substance: CALCIUM
  2. ACIDOLPHILUS [Concomitant]
  3. XANAX [Concomitant]
     Active Substance: ALPRAZOLAM
  4. MIRVASO [Suspect]
     Active Substance: BRIMONIDINE TARTRATE
     Indication: ROSACEA
     Dosage: PEA SIZE ONCE DAILY APPLIED TO A SURFACE, USUALLY THE SKIN
     Dates: start: 20160209, end: 20160211

REACTIONS (4)
  - Rash macular [None]
  - Pain [None]
  - Erythema [None]
  - Nasal discomfort [None]

NARRATIVE: CASE EVENT DATE: 20160209
